FAERS Safety Report 4062862 (Version 27)
Quarter: 2014Q4

REPORT INFORMATION
  Report Type: Spontaneous
  Country: US (occurrence: US)
  Receive Date: 20010919
  Receipt Date: 20141124
  Transmission Date: 20150529
  Serious: Yes (Hospitalization, Disabling, Other)
  Sender: FDA-Public Use
  Company Number: US-ROCHE-87683

PATIENT
  Age: 22 Year
  Sex: Female
  Weight: 46.7 kg

DRUGS (5)
  1. PREVACID [Concomitant]
     Active Substance: LANSOPRAZOLE
  2. ACCUTANE [Suspect]
     Active Substance: ISOTRETINOIN
     Indication: ACNE
     Route: 048
     Dates: start: 19950923, end: 19951003
  3. ACCUTANE [Suspect]
     Active Substance: ISOTRETINOIN
     Route: 048
     Dates: start: 19951004, end: 19951120
  4. ORTHO TRI CYCLEN [Concomitant]
     Active Substance: ETHINYL ESTRADIOL\NORGESTIMATE
  5. PREDNISONE. [Concomitant]
     Active Substance: PREDNISONE
     Route: 065

REACTIONS (92)
  - Inflammatory bowel disease [Not Recovered/Not Resolved]
  - Tonsillectomy [Recovered/Resolved]
  - Sleep disorder [Unknown]
  - Anger [Unknown]
  - Pain [Unknown]
  - Chest pain [Unknown]
  - Mitral valve incompetence [Unknown]
  - Ill-defined disorder [Unknown]
  - Coccydynia [Unknown]
  - Pain in extremity [Unknown]
  - Polyarthritis [Not Recovered/Not Resolved]
  - Myalgia [Unknown]
  - Gallbladder disorder [Recovered/Resolved]
  - Muscular weakness [Unknown]
  - Tendonitis [Not Recovered/Not Resolved]
  - Irritability [Unknown]
  - Back pain [Not Recovered/Not Resolved]
  - Peripheral swelling [Unknown]
  - Uveitis [Recovering/Resolving]
  - Arthritis [Unknown]
  - Rash [Unknown]
  - Pain in extremity [Unknown]
  - Abasia [Unknown]
  - Radiculitis brachial [Unknown]
  - Colitis ulcerative [Not Recovered/Not Resolved]
  - Nausea [Not Recovered/Not Resolved]
  - Abscess [Unknown]
  - Abdominal pain upper [Unknown]
  - Ileus [Unknown]
  - Crohn^s disease [Not Recovered/Not Resolved]
  - Weight decreased [Unknown]
  - Depression [Unknown]
  - Suicidal ideation [Unknown]
  - Interstitial lung disease [Unknown]
  - Viral infection [Unknown]
  - Dizziness [Unknown]
  - Gastritis [Unknown]
  - Obsessive thoughts [Unknown]
  - Obsessive-compulsive personality disorder [Unknown]
  - Memory impairment [Unknown]
  - Cholecystectomy [Recovered/Resolved]
  - Ovarian cyst [Unknown]
  - Pain in extremity [Unknown]
  - Mobility decreased [Unknown]
  - Arthralgia [Unknown]
  - Haematochezia [Unknown]
  - Gastrointestinal disorder [Unknown]
  - Lymphadenopathy [Unknown]
  - Constipation [Unknown]
  - Anhedonia [Unknown]
  - Abdominal pain upper [Unknown]
  - Headache [Not Recovered/Not Resolved]
  - Mood swings [Unknown]
  - Opportunistic infection [Unknown]
  - Musculoskeletal pain [Unknown]
  - Anxiety [Unknown]
  - Fatigue [Not Recovered/Not Resolved]
  - Arthralgia [Unknown]
  - Asthenia [Unknown]
  - Disturbance in attention [Unknown]
  - Confusional state [Unknown]
  - Anxiety [Unknown]
  - Thrombocytopenia [Recovered/Resolved]
  - Haemangioma of liver [Unknown]
  - Eating disorder [Not Recovered/Not Resolved]
  - Episcleritis [Not Recovered/Not Resolved]
  - Dehydration [Unknown]
  - Arthropathy [Unknown]
  - Colitis [Unknown]
  - Pyrexia [Unknown]
  - Intestinal mass [Unknown]
  - Biliary dyskinesia [Recovered/Resolved]
  - Agitation [Unknown]
  - Jaw disorder [Unknown]
  - Nail disorder [Unknown]
  - Optic disc drusen [Not Recovered/Not Resolved]
  - Oedema mucosal [Unknown]
  - Dry skin [Unknown]
  - Fear [Unknown]
  - Vitamin D deficiency [Recovered/Resolved]
  - Vomiting [Unknown]
  - Arthralgia [Unknown]
  - Arthritis enteropathic [Unknown]
  - Abdominal distension [Unknown]
  - Ill-defined disorder [Unknown]
  - Decreased appetite [Unknown]
  - Increased tendency to bruise [Unknown]
  - Panic attack [Unknown]
  - Anaemia [Recovered/Resolved]
  - Hepatic cyst [Unknown]
  - Hepatic steatosis [Unknown]
  - Ulcer [Unknown]

NARRATIVE: CASE EVENT DATE: 19951002
